FAERS Safety Report 11820735 (Version 1)
Quarter: 2015Q4

REPORT INFORMATION
  Report Type: Spontaneous
  Country: US (occurrence: US)
  Receive Date: 20151210
  Receipt Date: 20151210
  Transmission Date: 20160305
  Serious: No
  Sender: FDA-Public Use
  Company Number: US-JNJFOC-20150713826

PATIENT
  Sex: Male

DRUGS (9)
  1. ASPIRIN. [Concomitant]
     Active Substance: ASPIRIN
  2. MUCINEX [Concomitant]
     Active Substance: GUAIFENESIN
  3. CARVEDILOL. [Concomitant]
     Active Substance: CARVEDILOL
  4. VITAMIN [Concomitant]
     Active Substance: VITAMINS
  5. OXYCODONE [Concomitant]
     Active Substance: OXYCODONE
  6. ONDANSETRON [Concomitant]
     Active Substance: ONDANSETRON
  7. VIREAD [Concomitant]
     Active Substance: TENOFOVIR DISOPROXIL FUMARATE
  8. IMBRUVICA [Suspect]
     Active Substance: IBRUTINIB
     Indication: MANTLE CELL LYMPHOMA
     Route: 048
     Dates: start: 20150528
  9. FUROSEMIDE. [Concomitant]
     Active Substance: FUROSEMIDE

REACTIONS (2)
  - Tooth infection [Unknown]
  - Feeling abnormal [Unknown]
